FAERS Safety Report 6401882-4 (Version None)
Quarter: 2009Q4

REPORT INFORMATION
  Report Type: 
  Country: None (occurrence: None)
  Receive Date: 20091013
  Receipt Date: 20091013
  Transmission Date: 20100525
  Serious: Yes (Life-Threatening, Hospitalization)
  Sender: FDA-Public Use
  Company Number: None

PATIENT
  Age: 28 Year
  Sex: Female
  Weight: 69.8539 kg

DRUGS (1)
  1. ROCURONIUM BROMIDE [Suspect]
     Indication: INDUCTION OF ANAESTHESIA
     Dates: start: 20091008, end: 20091008

REACTIONS (3)
  - BLOOD PRESSURE DECREASED [None]
  - HEART RATE INCREASED [None]
  - OXYGEN SATURATION DECREASED [None]
